FAERS Safety Report 17997296 (Version 1)
Quarter: 2020Q3

REPORT INFORMATION
  Report Type: Spontaneous
  Country: IN (occurrence: IN)
  Receive Date: 20200708
  Receipt Date: 20200708
  Transmission Date: 20201103
  Serious: Yes (Death)
  Sender: FDA-Public Use
  Company Number: NVSC2020IN192551

PATIENT
  Age: 51 Year
  Sex: Female

DRUGS (1)
  1. KRYXANA [Suspect]
     Active Substance: RIBOCICLIB
     Indication: BREAST CANCER METASTATIC
     Dosage: 600 MG, BID
     Route: 065
     Dates: start: 20200303, end: 20200625

REACTIONS (1)
  - Death [Fatal]

NARRATIVE: CASE EVENT DATE: 20200626
